FAERS Safety Report 26126326 (Version 3)
Quarter: 2025Q4

REPORT INFORMATION
  Report Type: Spontaneous
  Country: US (occurrence: US)
  Receive Date: 20251205
  Receipt Date: 20251226
  Transmission Date: 20260117
  Serious: No
  Sender: VERTEX
  Company Number: US-VERTEX PHARMACEUTICALS-2025-020486

PATIENT

DRUGS (1)
  1. TRIKAFTA [Suspect]
     Active Substance: ELEXACAFTOR\IVACAFTOR\TEZACAFTOR
     Indication: Cystic fibrosis
     Dosage: UNKNOWN DOSAGE REGIMEN
     Route: 061

REACTIONS (10)
  - Hyponatraemia [Unknown]
  - Feeling cold [Unknown]
  - Chills [Unknown]
  - Fatigue [Unknown]
  - Brain fog [Unknown]
  - Vision blurred [Unknown]
  - Ophthalmic migraine [Unknown]
  - Intraocular pressure increased [Unknown]
  - Mental disorder [Unknown]
  - Sympathomimetic effect [Unknown]
